FAERS Safety Report 25055882 (Version 1)
Quarter: 2025Q1

REPORT INFORMATION
  Report Type: Spontaneous
  Country: GB (occurrence: GB)
  Receive Date: 20250309
  Receipt Date: 20250309
  Transmission Date: 20250409
  Serious: Yes (Other)
  Sender: AUROBINDO
  Company Number: GB-MHRA-MED-202502230022399130-QHLPM

PATIENT
  Age: 54 Year
  Sex: Female
  Weight: 72 kg

DRUGS (1)
  1. AZITHROMYCIN ANHYDROUS [Suspect]
     Active Substance: AZITHROMYCIN ANHYDROUS
     Indication: Prophylaxis
     Route: 065
     Dates: start: 20241001

REACTIONS (1)
  - Atrophic vulvovaginitis [Not Recovered/Not Resolved]
